FAERS Safety Report 8872393 (Version 2)
Quarter: 2012Q4

REPORT INFORMATION
  Report Type: Report from Study
  Country: US (occurrence: US)
  Receive Date: 20121029
  Receipt Date: 20121031
  Transmission Date: 20130627
  Serious: Yes (Hospitalization)
  Sender: FDA-Public Use
  Company Number: US-ACTELION-A-US2012-73283

PATIENT
  Age: 72 Year
  Sex: Male

DRUGS (3)
  1. TRACLEER [Suspect]
     Indication: PULMONARY ARTERIAL HYPERTENSION
     Dosage: UNK
     Route: 048
  2. ADCIRCA [Concomitant]
  3. COUMADIN [Concomitant]

REACTIONS (2)
  - Atrial fibrillation [Recovered/Resolved]
  - Heart rate increased [Recovered/Resolved]
